FAERS Safety Report 25890791 (Version 1)
Quarter: 2025Q4

REPORT INFORMATION
  Report Type: Spontaneous
  Country: US (occurrence: US)
  Receive Date: 20251007
  Receipt Date: 20251007
  Transmission Date: 20260117
  Serious: No
  Sender: PADAGIS
  Company Number: US-PADAGIS-2025PAD01224

PATIENT

DRUGS (1)
  1. ESTRADIOL VAGINAL [Suspect]
     Active Substance: ESTRADIOL
     Indication: Menopause
     Dosage: UNK
     Route: 065
     Dates: start: 202507

REACTIONS (2)
  - Vaginal infection [Recovered/Resolved]
  - Pruritus [Not Recovered/Not Resolved]
